FAERS Safety Report 18622345 (Version 1)
Quarter: 2020Q4

REPORT INFORMATION
  Report Type: Spontaneous
  Country: US (occurrence: US)
  Receive Date: 20201215
  Receipt Date: 20201215
  Transmission Date: 20210114
  Serious: Yes (Hospitalization)
  Sender: FDA-Public Use
  Company Number: None

PATIENT
  Age: 54 Year
  Sex: Male
  Weight: 102.7 kg

DRUGS (1)
  1. BAMLANIVIMAB 700MG/200ML NS [Suspect]
     Active Substance: BAMLANIVIMAB
     Indication: COVID-19
     Dosage: ?          OTHER FREQUENCY:ONCE;?
     Route: 040

REACTIONS (7)
  - Malaise [None]
  - Chills [None]
  - Tremor [None]
  - Dyspnoea [None]
  - Cough [None]
  - Oxygen saturation decreased [None]
  - Piloerection [None]

NARRATIVE: CASE EVENT DATE: 20201214
